FAERS Safety Report 8541638-X (Version None)
Quarter: 2012Q3

REPORT INFORMATION
  Report Type: 
  Country: None (occurrence: None)
  Receive Date: 20120726
  Receipt Date: 20120717
  Transmission Date: 20120928
  Serious: Yes (Hospitalization, Congenital Anomaly)
  Sender: FDA-Public Use
  Company Number: US-GLAXOSMITHKLINE-A0976826A

PATIENT
  Sex: Male

DRUGS (3)
  1. PAXIL [Suspect]
     Indication: DEPRESSION
     Dosage: 30MG IN THE MORNING
     Route: 064
  2. NEXIUM [Concomitant]
  3. MULTI-VITAMINS [Concomitant]

REACTIONS (6)
  - SUBARACHNOID HAEMORRHAGE [None]
  - VENTRICULAR SEPTAL DEFECT [None]
  - ATRIAL SEPTAL DEFECT [None]
  - DRUG WITHDRAWAL SYNDROME [None]
  - FOETAL EXPOSURE DURING PREGNANCY [None]
  - CONVULSION [None]
